FAERS Safety Report 23940526 (Version 1)
Quarter: 2024Q2

REPORT INFORMATION
  Report Type: Spontaneous
  Country: GB (occurrence: GB)
  Receive Date: 20240605
  Receipt Date: 20240605
  Transmission Date: 20240716
  Serious: Yes (Other)
  Sender: FDA-Public Use
  Company Number: None

PATIENT
  Sex: Female

DRUGS (1)
  1. ESCITALOPRAM [Suspect]
     Active Substance: ESCITALOPRAM OXALATE
     Indication: Depression
     Dosage: 20MG A DAY, TEVA UK ESCITALOPRAM
     Route: 065
     Dates: start: 20220504

REACTIONS (2)
  - Brain fog [Not Recovered/Not Resolved]
  - Electric shock sensation [Not Recovered/Not Resolved]
